FAERS Safety Report 18915365 (Version 1)
Quarter: 2021Q1

REPORT INFORMATION
  Report Type: Spontaneous
  Country: AR (occurrence: AR)
  Receive Date: 20210219
  Receipt Date: 20210219
  Transmission Date: 20210420
  Serious: Yes (Death)
  Sender: FDA-Public Use
  Company Number: NVSC2021AR039657

PATIENT
  Age: 70 Year
  Sex: Male

DRUGS (1)
  1. ENTRESTO [Suspect]
     Active Substance: SACUBITRIL\VALSARTAN
     Indication: CORONARY ARTERY DISEASE
     Dosage: 100 MG,(APPROXIMATELY A YEAR AND A HALF AGO)
     Route: 065

REACTIONS (2)
  - Product use in unapproved indication [Unknown]
  - Sudden death [Fatal]

NARRATIVE: CASE EVENT DATE: 20210101
